FAERS Safety Report 9903028 (Version 1)
Quarter: 2014Q1

REPORT INFORMATION
  Report Type: Report from Study
  Country: NL (occurrence: NL)
  Receive Date: 20140217
  Receipt Date: 20140217
  Transmission Date: 20141002
  Serious: Yes (Death)
  Sender: FDA-Public Use
  Company Number: PHHY2014NL018166

PATIENT
  Age: 76 Year
  Sex: 0

DRUGS (2)
  1. SANDOSTATIN LAR [Suspect]
     Indication: PANCREATIC NEUROENDOCRINE TUMOUR
     Dosage: 10 MG + 2 ML SOLVENT, ONCE EVERY 4 WEEKS
     Dates: start: 20100729
  2. SANDOSTATIN LAR [Suspect]
     Dosage: 10 MG + 2 ML SOLVENT, ONCE EVERY 4 WEEKS
     Dates: start: 20110509

REACTIONS (1)
  - Death [Fatal]
